FAERS Safety Report 15763840 (Version 3)
Quarter: 2019Q2

REPORT INFORMATION
  Report Type: Report from Study
  Country: US (occurrence: US)
  Receive Date: 20181227
  Receipt Date: 20190626
  Transmission Date: 20190711
  Serious: Yes (Other)
  Sender: FDA-Public Use
  Company Number: US-SUN PHARMACEUTICAL INDUSTRIES LTD-2018R1-194681

PATIENT
  Age: 85 Year
  Sex: Female

DRUGS (1)
  1. DOFETILIDE. [Suspect]
     Active Substance: DOFETILIDE
     Indication: PRODUCT USED FOR UNKNOWN INDICATION
     Dosage: SECOND DOSE OF 500 UG
     Route: 065

REACTIONS (2)
  - Torsade de pointes [Unknown]
  - Electrocardiogram QT prolonged [Unknown]
